FAERS Safety Report 8884777 (Version 2)
Quarter: 2012Q4

REPORT INFORMATION
  Report Type: 
  Country: IT (occurrence: IT)
  Receive Date: 20121102
  Receipt Date: 20121205
  Transmission Date: 20130627
  Serious: Yes (Hospitalization)
  Sender: FDA-Public Use
  Company Number: IT-SANOFI-AVENTIS-2012SA078998

PATIENT
  Age: 90 Year
  Sex: Male

DRUGS (5)
  1. LASIX [Suspect]
     Indication: DRUG USE FOR UNKNOWN INDICATION
     Route: 048
     Dates: start: 20110821, end: 20120820
  2. TRIATEC [Suspect]
     Indication: DRUG USE FOR UNKNOWN INDICATION
     Route: 048
     Dates: start: 20110821, end: 20120820
  3. KANRENOL [Suspect]
     Indication: DRUG USE FOR UNKNOWN INDICATION
     Route: 048
     Dates: start: 20110821, end: 20120820
  4. CARDIOASPIRIN [Concomitant]
     Route: 048
  5. GLUCOPHAGE [Concomitant]
     Route: 048

REACTIONS (6)
  - Blood potassium increased [None]
  - Blood chloride decreased [None]
  - Blood sodium decreased [None]
  - Blood urea increased [None]
  - Blood creatinine increased [None]
  - Syncope [Recovering/Resolving]
